FAERS Safety Report 19447857 (Version 4)
Quarter: 2021Q3

REPORT INFORMATION
  Report Type: Report from Study
  Country: US (occurrence: US)
  Receive Date: 20210622
  Receipt Date: 20210809
  Transmission Date: 20211014
  Serious: Yes (Hospitalization, Other)
  Sender: FDA-Public Use
  Company Number: US-ALKERMES INC.-ALK-2021-003159

PATIENT
  Age: 38 Year
  Sex: Female
  Weight: 99.7 kg

DRUGS (45)
  1. VIVITROL [Suspect]
     Active Substance: NALTREXONE
     Indication: DRUG USE DISORDER
     Dosage: 380 MILLIGRAM, QMO
     Route: 030
     Dates: start: 20210609, end: 20210609
  2. LUCEMYRA [Concomitant]
     Active Substance: LOFEXIDINE
     Dosage: 0.18 MILLIGRAM, ONE TIME DOSE
     Route: 048
     Dates: start: 20210608, end: 20210608
  3. LUCEMYRA [Concomitant]
     Active Substance: LOFEXIDINE
     Dosage: 0.18 MILLIGRAM, ONE TIME DOSE
     Route: 048
     Dates: start: 20210607, end: 20210607
  4. LUCEMYRA [Concomitant]
     Active Substance: LOFEXIDINE
     Dosage: 0.18 MILLIGRAM, ONE TIME DOSE
     Route: 048
     Dates: start: 20210607, end: 20210607
  5. LUCEMYRA [Concomitant]
     Active Substance: LOFEXIDINE
     Dosage: 0.36 MILLIGRAM, ONE TIME DOSE
     Route: 048
     Dates: start: 20210604, end: 20210604
  6. OTHER THERAPEUTIC PRODUCTS [Concomitant]
     Active Substance: UNSPECIFIED INGREDIENT
     Dosage: 100 MILLIGRAM, ONE TIME DOSE
     Route: 048
     Dates: start: 20210607, end: 20210607
  7. OTHER THERAPEUTIC PRODUCTS [Concomitant]
     Active Substance: UNSPECIFIED INGREDIENT
     Dosage: 100 MILLIGRAM, ONE TIME DOSE
     Route: 048
     Dates: start: 20210605, end: 20210605
  8. OTHER THERAPEUTIC PRODUCTS [Concomitant]
     Active Substance: UNSPECIFIED INGREDIENT
     Dosage: 100 MILLIGRAM, ONE TIME DOSE
     Route: 048
     Dates: start: 20210604, end: 20210604
  9. LUCEMYRA [Concomitant]
     Active Substance: LOFEXIDINE
     Dosage: 0.54 MILLIGRAM, ONE TIME DOSE
     Route: 048
     Dates: start: 20210605, end: 20210605
  10. LUCEMYRA [Concomitant]
     Active Substance: LOFEXIDINE
     Dosage: 0.54 MILLIGRAM, ONE TIME DOSE
     Route: 048
     Dates: start: 20210604, end: 20210604
  11. LUCEMYRA [Concomitant]
     Active Substance: LOFEXIDINE
     Dosage: 0.36 MILLIGRAM, ONE TIME DOSE
     Route: 048
     Dates: start: 20210603, end: 20210603
  12. OTHER THERAPEUTIC PRODUCTS [Concomitant]
     Active Substance: UNSPECIFIED INGREDIENT
     Dosage: 200 MILLIGRAM, ONE TIME DOSE
     Route: 048
     Dates: start: 20210604, end: 20210604
  13. LUCEMYRA [Concomitant]
     Active Substance: LOFEXIDINE
     Indication: WITHDRAWAL SYNDROME
     Dosage: 0.18 MILLIGRAM, ONE TIME DOSE
     Route: 048
     Dates: start: 20210608, end: 20210608
  14. LUCEMYRA [Concomitant]
     Active Substance: LOFEXIDINE
     Dosage: 0.18 MILLIGRAM, ONE TIME DOSE
     Route: 048
     Dates: start: 20210608, end: 20210608
  15. LUCEMYRA [Concomitant]
     Active Substance: LOFEXIDINE
     Dosage: 0.36 MILLIGRAM, ONE TIME DOSE
     Route: 048
     Dates: start: 20210607, end: 20210607
  16. LUCEMYRA [Concomitant]
     Active Substance: LOFEXIDINE
     Dosage: 0.54 MILLIGRAM, ONE TIME DOSE
     Route: 048
     Dates: start: 20210603, end: 20210603
  17. OTHER THERAPEUTIC PRODUCTS [Concomitant]
     Active Substance: UNSPECIFIED INGREDIENT
     Dosage: 100 MILLIGRAM, ONE TIME DOSE
     Route: 048
     Dates: start: 20210606, end: 20210606
  18. OTHER THERAPEUTIC PRODUCTS [Concomitant]
     Active Substance: UNSPECIFIED INGREDIENT
     Dosage: 100 MILLIGRAM, ONE TIME DOSE
     Route: 048
     Dates: start: 20210603, end: 20210603
  19. LUCEMYRA [Concomitant]
     Active Substance: LOFEXIDINE
     Dosage: 0.36 MILLIGRAM, ONE TIME DOSE
     Route: 048
     Dates: start: 20210606, end: 20210606
  20. LUCEMYRA [Concomitant]
     Active Substance: LOFEXIDINE
     Dosage: 0.54 MILLIGRAM, ONE TIME DOSE
     Route: 048
     Dates: start: 20210605, end: 20210605
  21. LUCEMYRA [Concomitant]
     Active Substance: LOFEXIDINE
     Dosage: 0.54 MILLIGRAM, ONE TIME DOSE
     Route: 048
     Dates: start: 20210605, end: 20210605
  22. OTHER THERAPEUTIC PRODUCTS [Concomitant]
     Active Substance: UNSPECIFIED INGREDIENT
     Dosage: 25 MILLIGRAM, ONE TIME DOSE
     Route: 048
     Dates: start: 20210608, end: 20210608
  23. OTHER THERAPEUTIC PRODUCTS [Concomitant]
     Active Substance: UNSPECIFIED INGREDIENT
     Dosage: 100 MILLIGRAM, ONE TIME DOSE
     Route: 048
     Dates: start: 20210603, end: 20210603
  24. AMLODIPINE [Concomitant]
     Active Substance: AMLODIPINE BESYLATE
     Indication: HYPERTENSION
     Dosage: 5 MILLIGRAM
     Route: 065
  25. LUCEMYRA [Concomitant]
     Active Substance: LOFEXIDINE
     Dosage: 0.54 MILLIGRAM, ONE TIME DOSE
     Route: 048
     Dates: start: 20210603, end: 20210603
  26. OTHER THERAPEUTIC PRODUCTS [Concomitant]
     Active Substance: UNSPECIFIED INGREDIENT
     Dosage: 200 MILLIGRAM, ONE TIME DOSE
     Route: 048
     Dates: start: 20210604, end: 20210604
  27. OTHER THERAPEUTIC PRODUCTS [Concomitant]
     Active Substance: UNSPECIFIED INGREDIENT
     Dosage: 100 MILLIGRAM, ONE TIME DOSE
     Route: 048
     Dates: start: 20210604, end: 20210604
  28. LUCEMYRA [Concomitant]
     Active Substance: LOFEXIDINE
     Dosage: 0.36 MILLIGRAM, ONE TIME DOSE
     Route: 048
     Dates: start: 20210604, end: 20210604
  29. OTHER THERAPEUTIC PRODUCTS [Concomitant]
     Active Substance: UNSPECIFIED INGREDIENT
     Dosage: 25 MILLIGRAM, ONE TIME DOSE
     Route: 048
     Dates: start: 20210608, end: 20210608
  30. OTHER THERAPEUTIC PRODUCTS [Concomitant]
     Active Substance: UNSPECIFIED INGREDIENT
     Dosage: 200 MILLIGRAM, ONE TIME DOSE
     Route: 048
     Dates: start: 20210603, end: 20210603
  31. LUCEMYRA [Concomitant]
     Active Substance: LOFEXIDINE
     Dosage: 0.18 MILLIGRAM, ONE TIME DOSE
     Route: 048
     Dates: start: 20210608, end: 20210608
  32. LUCEMYRA [Concomitant]
     Active Substance: LOFEXIDINE
     Dosage: 0.36 MILLIGRAM, ONE TIME DOSE
     Route: 048
     Dates: start: 20210606, end: 20210606
  33. LUCEMYRA [Concomitant]
     Active Substance: LOFEXIDINE
     Dosage: 0.36 MILLIGRAM, ONE TIME DOSE
     Route: 048
     Dates: start: 20210606, end: 20210606
  34. OTHER THERAPEUTIC PRODUCTS [Concomitant]
     Active Substance: UNSPECIFIED INGREDIENT
     Indication: WITHDRAWAL SYNDROME
     Dosage: 25 MILLIGRAM, ONE TIME DOSE
     Route: 048
     Dates: start: 20210608, end: 20210608
  35. OTHER THERAPEUTIC PRODUCTS [Concomitant]
     Active Substance: UNSPECIFIED INGREDIENT
     Dosage: 25 MILLIGRAM, ONE TIME DOSE
     Route: 048
     Dates: start: 20210607, end: 20210607
  36. OTHER THERAPEUTIC PRODUCTS [Concomitant]
     Active Substance: UNSPECIFIED INGREDIENT
     Dosage: 50 MILLIGRAM, ONE TIME DOSE
     Route: 048
     Dates: start: 20210607, end: 20210607
  37. OTHER THERAPEUTIC PRODUCTS [Concomitant]
     Active Substance: UNSPECIFIED INGREDIENT
     Dosage: 150 MILLIGRAM, ONE TIME DOSE
     Route: 048
     Dates: start: 20210606, end: 20210606
  38. OTHER THERAPEUTIC PRODUCTS [Concomitant]
     Active Substance: UNSPECIFIED INGREDIENT
     Dosage: 75 MILLIGRAM, ONE TIME DOSE
     Route: 048
     Dates: start: 20210606, end: 20210606
  39. OTHER THERAPEUTIC PRODUCTS [Concomitant]
     Active Substance: UNSPECIFIED INGREDIENT
     Dosage: 200 MILLIGRAM, ONE TIME DOSE
     Route: 048
     Dates: start: 20210605, end: 20210605
  40. LUCEMYRA [Concomitant]
     Active Substance: LOFEXIDINE
     Dosage: 0.54 MILLIGRAM, ONE TIME DOSE
     Route: 048
     Dates: start: 20210603, end: 20210603
  41. OTHER THERAPEUTIC PRODUCTS [Concomitant]
     Active Substance: UNSPECIFIED INGREDIENT
     Dosage: 25 MILLIGRAM, ONE TIME DOSE
     Route: 048
     Dates: start: 20210608, end: 20210608
  42. OTHER THERAPEUTIC PRODUCTS [Concomitant]
     Active Substance: UNSPECIFIED INGREDIENT
     Dosage: 25 MILLIGRAM, ONE TIME DOSE
     Route: 048
     Dates: start: 20210607, end: 20210607
  43. OTHER THERAPEUTIC PRODUCTS [Concomitant]
     Active Substance: UNSPECIFIED INGREDIENT
     Dosage: 75 MILLIGRAM, ONE TIME DOSE
     Route: 048
     Dates: start: 20210606, end: 20210606
  44. OTHER THERAPEUTIC PRODUCTS [Concomitant]
     Active Substance: UNSPECIFIED INGREDIENT
     Dosage: 200 MILLIGRAM, ONE TIME DOSE
     Route: 048
     Dates: start: 20210605, end: 20210605
  45. OTHER THERAPEUTIC PRODUCTS [Concomitant]
     Active Substance: UNSPECIFIED INGREDIENT
     Dosage: 100 MILLIGRAM, ONE TIME DOSE
     Route: 048
     Dates: start: 20210603, end: 20210603

REACTIONS (2)
  - Nausea [Recovering/Resolving]
  - Vomiting [Recovering/Resolving]

NARRATIVE: CASE EVENT DATE: 20210612
